FAERS Safety Report 8461665-0 (Version None)
Quarter: 2012Q2

REPORT INFORMATION
  Report Type: 
  Country: None (occurrence: None)
  Receive Date: 20120625
  Receipt Date: 20120612
  Transmission Date: 20120825
  Serious: Yes (Hospitalization)
  Sender: FDA-Public Use
  Company Number: JP-JNJFOC-20120520031

PATIENT
  Sex: Male

DRUGS (5)
  1. OXAROL [Concomitant]
     Indication: PSORIASIS
     Route: 061
     Dates: start: 20100701
  2. EPINASTINE HYDROCHLORIDE [Concomitant]
     Indication: PRURITUS
     Route: 048
     Dates: start: 20100701
  3. DIFLORASONE DIACETATE [Concomitant]
     Indication: PSORIASIS
     Route: 061
     Dates: start: 20100701
  4. CINAL [Concomitant]
     Indication: PIGMENTATION DISORDER
     Route: 048
     Dates: start: 20100701
  5. STELARA [Suspect]
     Indication: PSORIASIS
     Route: 058
     Dates: start: 20110818

REACTIONS (1)
  - HEPATITIS B [None]
